FAERS Safety Report 5261724-X (Version None)
Quarter: 2007Q1

REPORT INFORMATION
  Report Type: 
  Country: None (occurrence: None)
  Receive Date: 20070307
  Receipt Date: 20070226
  Transmission Date: 20070707
  Serious: Yes (Death, Other)
  Sender: FDA-Public Use
  Company Number: 430002E07ITA

PATIENT
  Age: 67 Year
  Sex: Female

DRUGS (6)
  1. NOVANTRONE [Suspect]
     Dosage: 10 MG
     Dates: start: 20070205, end: 20070209
  2. CYTARABINE [Suspect]
     Dosage: 150 MG
     Dates: start: 20070205, end: 20070211
  3. ETOPOSIDE [Suspect]
     Dosage: 150 MG
     Dates: start: 20070205, end: 20070207
  4. AMIKACIN /00391001/ [Concomitant]
  5. PIPERACILLIN /00502401/ [Concomitant]
  6. TAZOBACTAM [Concomitant]

REACTIONS (4)
  - ACUTE RESPIRATORY DISTRESS SYNDROME [None]
  - ESCHERICHIA SEPSIS [None]
  - MULTI-ORGAN FAILURE [None]
  - SEPTIC SHOCK [None]
